FAERS Safety Report 8895835 (Version 2)
Quarter: 2012Q4

REPORT INFORMATION
  Report Type: Report from Study
  Country: NL (occurrence: NL)
  Receive Date: 20121107
  Receipt Date: 20121119
  Transmission Date: 20130627
  Serious: Yes (Hospitalization)
  Sender: FDA-Public Use
  Company Number: NL-CELGENEUS-114-21880-12103685

PATIENT
  Age: 83 Year
  Sex: Male
  Weight: 79 kg

DRUGS (9)
  1. REVLIMID [Suspect]
     Indication: MULTIPLE MYELOMA
     Dosage: 10 Milligram
     Route: 048
     Dates: start: 20120703, end: 20120723
  2. REVLIMID [Suspect]
     Route: 048
  3. MELPHALAN [Suspect]
     Indication: OSTEOPOROSIS
     Route: 065
  4. PREDNISONE [Suspect]
     Indication: MULTIPLE MYELOMA
     Route: 065
  5. ACENOCOUMAROL [Concomitant]
     Indication: ATRIAL FIBRILLATION
     Route: 048
     Dates: start: 2011, end: 20120724
  6. ENALAPRIL [Concomitant]
     Indication: HYPERTENSION
     Dosage: 5 Milligram
     Route: 048
     Dates: start: 2011
  7. METOPROLOL [Concomitant]
     Indication: ATRIAL FIBRILLATION
     Route: 048
     Dates: start: 2011
  8. PAMIDRONATE [Concomitant]
     Indication: MULTIPLE MYELOMA
     Dosage: 3.2143 Milligram
     Route: 041
     Dates: start: 20111230
  9. PAMIDRONATE [Concomitant]
     Indication: OSTEOPOROSIS

REACTIONS (1)
  - Renal haemorrhage [Recovered/Resolved]
